FAERS Safety Report 8157303-7 (Version None)
Quarter: 2012Q1

REPORT INFORMATION
  Report Type: 
  Country: None (occurrence: None)
  Receive Date: 20120222
  Receipt Date: 20120217
  Transmission Date: 20120608
  Serious: Yes (Hospitalization)
  Sender: FDA-Public Use
  Company Number: US-GILEAD-2012-0050193

PATIENT
  Sex: Female

DRUGS (2)
  1. LETAIRIS [Suspect]
     Indication: PULMONARY HYPERTENSION
     Dosage: 5 MG, UNK
     Route: 048
     Dates: start: 20120125
  2. LETAIRIS [Suspect]
     Indication: PULMONARY FIBROSIS

REACTIONS (6)
  - GENERAL PHYSICAL HEALTH DETERIORATION [None]
  - COUGH [None]
  - OXYGEN SATURATION DECREASED [None]
  - OEDEMA PERIPHERAL [None]
  - WEIGHT INCREASED [None]
  - NASAL CONGESTION [None]
